FAERS Safety Report 9869990 (Version 1)
Quarter: 2014Q1

REPORT INFORMATION
  Report Type: Spontaneous
  Country: US (occurrence: US)
  Receive Date: 20140205
  Receipt Date: 20140205
  Transmission Date: 20141002
  Serious: No
  Sender: FDA-Public Use
  Company Number: US-GLAXOSMITHKLINE-A1014607A

PATIENT
  Age: 62 Year
  Sex: Male

DRUGS (2)
  1. VALACYCLOVIR [Suspect]
     Indication: INFECTION
     Route: 048
     Dates: start: 2007, end: 2007
  2. XALATAN [Concomitant]

REACTIONS (4)
  - Hypersensitivity [Recovered/Resolved]
  - Ocular icterus [Unknown]
  - Chromaturia [Unknown]
  - Malaise [Unknown]
